FAERS Safety Report 14562684 (Version 4)
Quarter: 2018Q2

REPORT INFORMATION
  Report Type: Report from Study
  Country: US (occurrence: US)
  Receive Date: 20180222
  Receipt Date: 20180412
  Transmission Date: 20180711
  Serious: No
  Sender: FDA-Public Use
  Company Number: PHEH2018US006848

PATIENT
  Sex: Female

DRUGS (1)
  1. ILEVRO [Suspect]
     Active Substance: NEPAFENAC
     Indication: PRODUCT USED FOR UNKNOWN INDICATION
     Dosage: 1 GTT, QID
     Route: 047

REACTIONS (6)
  - Migraine [Unknown]
  - Malaise [Unknown]
  - Liquid product physical issue [Unknown]
  - Depressed mood [Unknown]
  - Abdominal discomfort [Unknown]
  - Product packaging quantity issue [Unknown]
